FAERS Safety Report 4887294-3 (Version None)
Quarter: 2005Q4

REPORT INFORMATION
  Report Type: 
  Country: None (occurrence: None)
  Receive Date: 20051221
  Receipt Date: 20051108
  Transmission Date: 20060501
  Serious: No
  Sender: FDA-Public Use
  Company Number: US-YAMANOUCHI-YPA20050524

PATIENT
  Age: 76 Year
  Sex: Female

DRUGS (7)
  1. VESICARE [Suspect]
     Indication: HYPERTONIC BLADDER
     Dosage: 5 MG QD PO
     Route: 048
     Dates: start: 20050701, end: 20051001
  2. VESICARE [Suspect]
     Indication: HYPERTONIC BLADDER
     Dosage: 5 MG QD PO
     Route: 048
     Dates: start: 20050101
  3. PROZAC [Concomitant]
  4. ACIPHEX [Concomitant]
  5. EVISTA [Concomitant]
  6. TRICOR [Concomitant]
  7. VITAMINS [Concomitant]

REACTIONS (3)
  - ALOPECIA [None]
  - DRY MOUTH [None]
  - DRY SKIN [None]
